FAERS Safety Report 10359348 (Version 1)
Quarter: 2014Q3

REPORT INFORMATION
  Report Type: Spontaneous
  Country: US (occurrence: None)
  Receive Date: 20140801
  Receipt Date: 20140801
  Transmission Date: 20150326
  Serious: Yes (Disabling)
  Sender: FDA-Public Use
  Company Number: None

PATIENT
  Age: 55 Year
  Sex: Female
  Weight: 58.51 kg

DRUGS (1)
  1. HUMIRA [Suspect]
     Active Substance: ADALIMUMAB
     Indication: PSORIATIC ARTHROPATHY
     Dosage: ONE INJECTION PER WEEK WEEKLY INTO THE MUSCLE
     Route: 030

REACTIONS (2)
  - Diffuse large B-cell lymphoma [None]
  - Hodgkin^s disease [None]

NARRATIVE: CASE EVENT DATE: 20110516
